FAERS Safety Report 4880854-5 (Version None)
Quarter: 2005Q4

REPORT INFORMATION
  Report Type: 
  Country: None (occurrence: None)
  Receive Date: 20051223
  Receipt Date: 20051114
  Transmission Date: 20060501
  Serious: No
  Sender: FDA-Public Use
  Company Number: 05P-163-0317110-00

PATIENT
  Age: 62 Year
  Sex: Female
  Weight: 102.3 kg

DRUGS (8)
  1. HUMIRA [Suspect]
     Indication: PSORIASIS
     Dosage: 40 MG, 1 IN 2 WK, SUBCUTANEOUS
     Route: 058
     Dates: start: 20051024
  2. HUMIRA [Suspect]
     Indication: PSORIATIC ARTHROPATHY
     Dosage: 40 MG, 1 IN 2 WK, SUBCUTANEOUS
     Route: 058
     Dates: start: 20051024
  3. LEVOTHYROXINE SODIUM [Concomitant]
  4. FOLIC ACID [Concomitant]
  5. WATER PILL [Concomitant]
  6. RANITIDINE HYDROCHLORIDE [Concomitant]
  7. VICODIN [Concomitant]
  8. MORPHINE LONG ACTION [Concomitant]

REACTIONS (4)
  - HEADACHE [None]
  - HYPERHIDROSIS [None]
  - NODULE [None]
  - PRURITUS [None]
